FAERS Safety Report 4320185-5 (Version None)
Quarter: 2004Q1

REPORT INFORMATION
  Report Type: 
  Country: None (occurrence: None)
  Receive Date: 20040317
  Receipt Date: 20040212
  Transmission Date: 20041129
  Serious: Yes (Life-Threatening, Hospitalization)
  Sender: FDA-Public Use
  Company Number: 1533

PATIENT
  Age: 73 Year
  Sex: Female
  Weight: 58.2 kg

DRUGS (5)
  1. ONTAK [Suspect]
     Indication: NON-HODGKIN'S LYMPHOMA
     Dosage: 9 UG/KG/D IV
     Route: 042
     Dates: start: 20040202, end: 20040206
  2. ACETAMINOPHEN [Concomitant]
  3. DIPHENHYDRAMINE HCL [Concomitant]
  4. PROCHLORPERAZINE EDISYLATE [Concomitant]
  5. WARFARIN SODIUM [Concomitant]

REACTIONS (5)
  - INTERNATIONAL NORMALISED RATIO INCREASED [None]
  - OEDEMA PERIPHERAL [None]
  - PAIN IN EXTREMITY [None]
  - PROTHROMBIN TIME PROLONGED [None]
  - RETROPERITONEAL HAEMORRHAGE [None]
